FAERS Safety Report 6130152-7 (Version None)
Quarter: 2009Q1

REPORT INFORMATION
  Report Type: 
  Country: None (occurrence: None)
  Receive Date: 20090324
  Receipt Date: 20090313
  Transmission Date: 20090719
  Serious: Yes (Other)
  Sender: FDA-Public Use
  Company Number: US-AMGEN-US338361

PATIENT
  Sex: Female

DRUGS (6)
  1. NPLATE [Suspect]
     Indication: IDIOPATHIC THROMBOCYTOPENIC PURPURA
     Dates: start: 20090212
  2. PREDNISONE [Concomitant]
  3. TOPAMAX [Concomitant]
  4. LISINOPRIL [Concomitant]
  5. VITAMINS NOS [Concomitant]
  6. UNSPECIFIED HERBAL PRODUCT [Concomitant]

REACTIONS (3)
  - ASTHENIA [None]
  - BLOOD PRESSURE DECREASED [None]
  - PLATELET COUNT INCREASED [None]
